FAERS Safety Report 14433344 (Version 1)
Quarter: 2018Q1

REPORT INFORMATION
  Report Type: Spontaneous
  Country: US (occurrence: US)
  Receive Date: 20180124
  Receipt Date: 20180124
  Transmission Date: 20180509
  Serious: Yes (Other)
  Sender: FDA-Public Use
  Company Number: US-PCCINC-T201606863

PATIENT

DRUGS (2)
  1. GABLOFEN [Suspect]
     Active Substance: BACLOFEN
     Indication: BRAIN INJURY
  2. GABLOFEN [Suspect]
     Active Substance: BACLOFEN
     Indication: MUSCLE SPASTICITY
     Dosage: 146.1 ?G, QD
     Route: 037
     Dates: start: 20160219

REACTIONS (5)
  - Device issue [Unknown]
  - Bradycardia [Unknown]
  - Salivary hypersecretion [Unknown]
  - Hypoxia [Unknown]
  - Seizure [Unknown]
